FAERS Safety Report 8995699 (Version 7)
Quarter: 2013Q2

REPORT INFORMATION
  Report Type: Spontaneous
  Country: US (occurrence: US)
  Receive Date: 20130103
  Receipt Date: 20130521
  Transmission Date: 20140414
  Serious: Yes (Hospitalization, Disabling, Other)
  Sender: FDA-Public Use
  Company Number: US-009507513-1212USA010567

PATIENT
  Sex: Female
  Weight: 91.61 kg

DRUGS (7)
  1. FOSAMAX [Suspect]
     Indication: OSTEOPENIA
     Dosage: 70 MG, UNK
     Route: 048
     Dates: start: 200304, end: 200802
  2. FOSAMAX [Suspect]
     Indication: OSTEOPOROSIS
  3. FOSAMAX [Suspect]
     Indication: OSTEOPENIA
     Dosage: 70 MG, UNK
     Route: 048
     Dates: start: 200803, end: 200804
  4. VITAMINS (UNSPECIFIED) [Concomitant]
     Dosage: UNK
     Dates: start: 2000
  5. CALCIUM (UNSPECIFIED) [Concomitant]
     Dosage: UNK
     Dates: start: 2000
  6. METHOTREXATE [Concomitant]
     Indication: RHEUMATOID ARTHRITIS
     Dosage: 25 MG, QW
  7. PLAQUENIL [Concomitant]
     Indication: RHEUMATOID ARTHRITIS
     Dosage: 200 MG, BID
     Route: 048

REACTIONS (28)
  - Femur fracture [Recovered/Resolved]
  - Open reduction of fracture [Unknown]
  - Postoperative fever [Recovered/Resolved]
  - Post procedural haemorrhage [Unknown]
  - Femur fracture [Not Recovered/Not Resolved]
  - Surgery [Unknown]
  - Cholecystectomy [Unknown]
  - Osteoporosis [Not Recovered/Not Resolved]
  - Low turnover osteopathy [Not Recovered/Not Resolved]
  - Stress fracture [Not Recovered/Not Resolved]
  - Device failure [Unknown]
  - Foot fracture [Recovered/Resolved]
  - Ligament sprain [Unknown]
  - Device failure [Unknown]
  - Foot fracture [Unknown]
  - Limb injury [Unknown]
  - Fall [Unknown]
  - Rheumatoid arthritis [Unknown]
  - Gastrointestinal disorder [Unknown]
  - Poor quality sleep [Unknown]
  - Asthenia [Unknown]
  - Osteoarthritis [Unknown]
  - Diverticulum [Unknown]
  - Renal cyst [Unknown]
  - Medical device removal [Unknown]
  - Blue toe syndrome [Unknown]
  - Gout [Unknown]
  - Gastrooesophageal reflux disease [Unknown]
